FAERS Safety Report 4364786-7 (Version None)
Quarter: 2004Q2

REPORT INFORMATION
  Report Type: 
  Country: None (occurrence: None)
  Receive Date: 20040526
  Receipt Date: 20020102
  Transmission Date: 20050107
  Serious: No
  Sender: FDA-Public Use
  Company Number: US-GLAXOSMITHKLINE-A0171844A

PATIENT
  Age: 35 Year
  Sex: Female

DRUGS (7)
  1. LOTRONEX [Suspect]
     Indication: IRRITABLE BOWEL SYNDROME
     Dosage: 1MG TWICE PER DAY
     Route: 048
     Dates: start: 20000405, end: 20000901
  2. LIBRAX [Concomitant]
  3. FIBER [Concomitant]
  4. MIRALAX [Concomitant]
  5. ANTISPASMODIC DRUG [Concomitant]
  6. LITHIUM CARBONATE [Concomitant]
  7. ESTRADIOL [Concomitant]

REACTIONS (3)
  - ABDOMINAL PAIN UPPER [None]
  - CONSTIPATION [None]
  - DIARRHOEA [None]
